FAERS Safety Report 16325759 (Version 1)
Quarter: 2019Q2

REPORT INFORMATION
  Report Type: Spontaneous
  Country: US (occurrence: US)
  Receive Date: 20190517
  Receipt Date: 20190517
  Transmission Date: 20190711
  Serious: No
  Sender: FDA-Public Use
  Company Number: US-COLLEGIUM PHARMACEUTICAL, INC.-2019CGM00105

PATIENT
  Age: 72 Year
  Sex: Male
  Weight: 113.38 kg

DRUGS (2)
  1. XTAMPZA ER [Suspect]
     Active Substance: OXYCODONE
     Indication: BACK PAIN
     Dosage: 36 MG, 2X/DAY EVERY 12 HOURS
     Dates: start: 201903
  2. MORPHINE SULFATE. [Concomitant]
     Active Substance: MORPHINE SULFATE
     Dosage: UNK, 2X/DAY 6 HOURS AFTER EACH XTAMPZA ER DOSE

REACTIONS (2)
  - Product substitution issue [Not Recovered/Not Resolved]
  - Therapeutic product effect incomplete [Not Recovered/Not Resolved]

NARRATIVE: CASE EVENT DATE: 201903
